FAERS Safety Report 8572024-4 (Version None)
Quarter: 2012Q3

REPORT INFORMATION
  Report Type: 
  Country: None (occurrence: None)
  Receive Date: 20120724
  Receipt Date: 20120713
  Transmission Date: 20120928
  Serious: Yes (Death)
  Sender: FDA-Public Use
  Company Number: ADR-2012-01319

PATIENT
  Age: 73 Year
  Sex: Female

DRUGS (1)
  1. BACLOFEN [Suspect]
     Indication: CEREBRAL HAEMORRHAGE
     Dosage: 50MCG/DAY

REACTIONS (4)
  - CEREBELLAR INFARCTION [None]
  - COMA [None]
  - CONDITION AGGRAVATED [None]
  - MUSCULOSKELETAL STIFFNESS [None]
